FAERS Safety Report 9155348 (Version 1)
Quarter: 2013Q1

REPORT INFORMATION
  Report Type: Spontaneous
  Country: DK (occurrence: DK)
  Receive Date: 20130311
  Receipt Date: 20130311
  Transmission Date: 20140127
  Serious: Yes (Other)
  Sender: FDA-Public Use
  Company Number: DK-PFIZER INC-2013080743

PATIENT
  Age: 44 Year
  Sex: Female

DRUGS (10)
  1. GEMCITABINE HYDROCHLORIDE [Suspect]
     Dosage: UNK
     Dates: start: 201201
  2. PACLITAXEL [Suspect]
     Dosage: UNK
     Dates: start: 201206
  3. VINORELBINE TARTRATE [Suspect]
     Dosage: UNK
     Dates: end: 201002
  4. DOCETAXEL [Suspect]
     Dosage: UNK
     Dates: start: 201206
  5. LAPATINIB [Suspect]
     Dosage: UNK
     Dates: start: 201105, end: 201201
  6. TRASTUZUMAB [Suspect]
     Dosage: UNK
     Dates: end: 201002
  7. TRASTUZUMAB [Suspect]
     Dosage: UNK
     Dates: start: 201201
  8. CAPECITABINE [Suspect]
     Dosage: UNK
     Dates: start: 201105, end: 201201
  9. ERIBULIN MESILATE [Suspect]
     Indication: BREAST CANCER
     Dosage: UNK
     Dates: start: 2006
  10. ERIBULIN MESILATE [Suspect]
     Dosage: UNK

REACTIONS (4)
  - Haematotoxicity [Unknown]
  - Ejection fraction abnormal [Unknown]
  - Disease progression [Not Recovered/Not Resolved]
  - Breast cancer [Not Recovered/Not Resolved]
